FAERS Safety Report 4565384-2 (Version None)
Quarter: 2005Q1

REPORT INFORMATION
  Report Type: 
  Country: None (occurrence: None)
  Receive Date: 20050126
  Receipt Date: 20050110
  Transmission Date: 20050727
  Serious: Yes (Hospitalization)
  Sender: FDA-Public Use
  Company Number: B0364007A

PATIENT
  Age: 52 Year
  Sex: Male

DRUGS (2)
  1. ALKERAN [Suspect]
     Indication: MULTIPLE MYELOMA
  2. PREDNISOLONE [Suspect]
     Indication: MULTIPLE MYELOMA

REACTIONS (18)
  - ABDOMINAL PAIN UPPER [None]
  - ABDOMINAL TENDERNESS [None]
  - ANOREXIA [None]
  - ASCITES [None]
  - BIOPSY PLEURA ABNORMAL [None]
  - COMPUTERISED TOMOGRAM ABNORMAL [None]
  - EOSINOPHIL PERCENTAGE INCREASED [None]
  - EOSINOPHILIA [None]
  - FASCIOLIASIS [None]
  - GRANULOMA [None]
  - HAEMOGLOBIN DECREASED [None]
  - HEPATIC LESION [None]
  - HEPATIC NECROSIS [None]
  - HEPATOMEGALY [None]
  - LIVER DISORDER [None]
  - PANCREATIC ENLARGEMENT [None]
  - PERITONITIS [None]
  - PLEURAL DISORDER [None]
